FAERS Safety Report 7782511-4 (Version None)
Quarter: 2011Q3

REPORT INFORMATION
  Report Type: 
  Country: None (occurrence: None)
  Receive Date: 20110927
  Receipt Date: 20110927
  Transmission Date: 20111222
  Serious: No
  Sender: FDA-Public Use
  Company Number: None

PATIENT
  Age: 62 Year
  Sex: Male
  Weight: 119.1 kg

DRUGS (2)
  1. AMPICILLIN AND SULBACTAM [Suspect]
     Indication: SURGERY
     Dosage: 3 GM TID IV
     Route: 042
     Dates: start: 20110714, end: 20110722
  2. AMPICILLIN AND SULBACTAM [Suspect]
     Indication: OSTEOMYELITIS
     Dosage: 3 GM TID IV
     Route: 042
     Dates: start: 20110714, end: 20110722

REACTIONS (2)
  - ALANINE AMINOTRANSFERASE INCREASED [None]
  - ASPARTATE AMINOTRANSFERASE INCREASED [None]
